FAERS Safety Report 9888733 (Version 2)
Quarter: 2014Q1

REPORT INFORMATION
  Report Type: Spontaneous
  Country: DE (occurrence: DE)
  Receive Date: 20140211
  Receipt Date: 20140211
  Transmission Date: 20141002
  Serious: Yes (Other)
  Sender: FDA-Public Use
  Company Number: DE-BRISTOL-MYERS SQUIBB COMPANY-20035317

PATIENT
  Age: 68 Year
  Sex: Male

DRUGS (5)
  1. ELIQUIS [Suspect]
     Indication: CEREBROVASCULAR ACCIDENT
     Dosage: TABS
     Dates: start: 20140110
  2. BLOPRESS [Concomitant]
  3. THYRONAJOD [Concomitant]
  4. ISOKET RETARD [Concomitant]
     Dosage: 1 DF=40 NO UNITS
  5. LOCOL [Concomitant]

REACTIONS (3)
  - Cerebrovascular disorder [Unknown]
  - Nasopharyngitis [Unknown]
  - Therapeutic response unexpected [Unknown]
